FAERS Safety Report 17816798 (Version 2)
Quarter: 2020Q3

REPORT INFORMATION
  Report Type: Report from Study
  Country: None (occurrence: US)
  Receive Date: 20200522
  Receipt Date: 20200825
  Transmission Date: 20201102
  Serious: Yes (Other)
  Sender: FDA-Public Use
  Company Number: US-ABBVIE-20K-163-3332363-00

PATIENT
  Sex: Male

DRUGS (3)
  1. VENCLEXTA [Suspect]
     Active Substance: VENETOCLAX
     Route: 048
     Dates: start: 2020
  2. VENCLEXTA [Suspect]
     Active Substance: VENETOCLAX
     Route: 048
  3. VENCLEXTA [Suspect]
     Active Substance: VENETOCLAX
     Indication: CHRONIC LYMPHOCYTIC LEUKAEMIA (IN REMISSION)
     Route: 048
     Dates: start: 20200303, end: 2020

REACTIONS (27)
  - Mean cell volume increased [Unknown]
  - Hyperhidrosis [Unknown]
  - White blood cell count decreased [Unknown]
  - Haematocrit decreased [Unknown]
  - Rhinorrhoea [Unknown]
  - Platelet count decreased [Unknown]
  - Epistaxis [Unknown]
  - Sinus congestion [Not Recovered/Not Resolved]
  - Cough [Unknown]
  - Pyrexia [Unknown]
  - Intervertebral disc degeneration [Not Recovered/Not Resolved]
  - Spinal osteoarthritis [Unknown]
  - Lethargy [Unknown]
  - Muscular weakness [Unknown]
  - Mobility decreased [Unknown]
  - Nephrolithiasis [Unknown]
  - Haemoglobin abnormal [Unknown]
  - Injection site papule [Unknown]
  - Blood calcium decreased [Unknown]
  - Atelectasis [Unknown]
  - Ascites [Unknown]
  - Back pain [Unknown]
  - Haemoglobin decreased [Unknown]
  - Alanine aminotransferase decreased [Unknown]
  - Weight decreased [Unknown]
  - Chills [Unknown]
  - Fatigue [Unknown]

NARRATIVE: CASE EVENT DATE: 2020
